FAERS Safety Report 4748350-3 (Version None)
Quarter: 2005Q3

REPORT INFORMATION
  Report Type: 
  Country: None (occurrence: None)
  Receive Date: 20050818
  Receipt Date: 20050513
  Transmission Date: 20060218
  Serious: Yes (Hospitalization, Other)
  Sender: FDA-Public Use
  Company Number: US-MERCK-0505USA01941

PATIENT
  Age: 54 Year
  Sex: Male
  Weight: 89 kg

DRUGS (10)
  1. VIOXX [Suspect]
     Indication: BACK PAIN
     Route: 048
     Dates: start: 20030601, end: 20030101
  2. ASPIRIN [Concomitant]
     Route: 048
     Dates: start: 19930101
  3. LIPITOR [Concomitant]
     Indication: BLOOD CHOLESTEROL INCREASED
     Route: 065
  4. ZOCOR [Concomitant]
     Route: 065
  5. ATENOLOL [Concomitant]
     Route: 065
  6. CARDIZEM [Concomitant]
     Route: 065
     Dates: start: 19920101, end: 20030101
  7. PLAVIX [Concomitant]
     Route: 065
     Dates: start: 19920101, end: 20030101
  8. NAPROSYN [Concomitant]
     Route: 065
     Dates: start: 20011218, end: 20030828
  9. PRAVACHOL [Concomitant]
     Route: 065
  10. ZANTAC [Concomitant]
     Route: 065

REACTIONS (2)
  - CEREBROVASCULAR ACCIDENT [None]
  - MYOCARDIAL INFARCTION [None]
